FAERS Safety Report 9805693 (Version 1)
Quarter: 2014Q1

REPORT INFORMATION
  Report Type: Spontaneous
  Country: US (occurrence: None)
  Receive Date: 20140108
  Receipt Date: 20140108
  Transmission Date: 20141002
  Serious: Yes (Life-Threatening)
  Sender: FDA-Public Use
  Company Number: None

PATIENT
  Age: 75 Year
  Sex: 0
  Weight: 75.5 kg

DRUGS (1)
  1. AMIODARONE [Suspect]
     Indication: ATRIAL FIBRILLATION
     Route: 042
     Dates: start: 20131203, end: 20131204

REACTIONS (7)
  - Bradycardia [None]
  - Atrioventricular block [None]
  - Electrocardiogram QT prolonged [None]
  - Liver function test abnormal [None]
  - Cardiogenic shock [None]
  - Septic shock [None]
  - Palpitations [None]
